FAERS Safety Report 11232234 (Version 1)
Quarter: 2015Q3

REPORT INFORMATION
  Report Type: Spontaneous
  Country: US (occurrence: US)
  Receive Date: 20150701
  Receipt Date: 20150701
  Transmission Date: 20151125
  Serious: Yes (Other)
  Sender: FDA-Public Use
  Company Number: US-PFIZER INC-2015218636

PATIENT
  Sex: Female

DRUGS (1)
  1. CELEBREX [Suspect]
     Active Substance: CELECOXIB
     Dosage: UNK

REACTIONS (5)
  - Haemorrhoids [Unknown]
  - Haematochezia [Unknown]
  - Arthralgia [Unknown]
  - Faeces discoloured [Unknown]
  - Gastrointestinal ulcer [Unknown]
